FAERS Safety Report 12009973 (Version 4)
Quarter: 2025Q2

REPORT INFORMATION
  Report Type: Spontaneous
  Country: IT (occurrence: IT)
  Receive Date: 20160205
  Receipt Date: 20250403
  Transmission Date: 20250717
  Serious: Yes (Hospitalization)
  Sender: BAYER
  Company Number: None

PATIENT
  Age: 56 Year
  Sex: Male

DRUGS (2)
  1. STIVARGA [Suspect]
     Active Substance: REGORAFENIB MONOHYDRATE
     Indication: Colon cancer metastatic
     Dosage: 160 MG, QD
     Route: 048
     Dates: start: 20160107, end: 20160119
  2. STIVARGA [Suspect]
     Active Substance: REGORAFENIB MONOHYDRATE
     Indication: Colon cancer metastatic
     Dosage: 80 MG, QD
     Route: 048
     Dates: start: 20160124, end: 20160131

REACTIONS (7)
  - Hyperammonaemic encephalopathy [Recovered/Resolved]
  - Disorientation [Recovered/Resolved]
  - Slow speech [Recovered/Resolved]
  - Motor dysfunction [None]
  - Confusional state [Recovered/Resolved]
  - Hyperammonaemia [Recovered/Resolved]
  - Hyperammonaemic encephalopathy [Recovered/Resolved]

NARRATIVE: CASE EVENT DATE: 20160101
